FAERS Safety Report 6152847-1 (Version None)
Quarter: 2009Q2

REPORT INFORMATION
  Report Type: 
  Country: None (occurrence: None)
  Receive Date: 20090413
  Receipt Date: 20090331
  Transmission Date: 20091009
  Serious: Yes (Hospitalization)
  Sender: FDA-Public Use
  Company Number: JP-PFIZER INC-2009185969

PATIENT

DRUGS (4)
  1. CHAMPIX [Suspect]
     Indication: SMOKING CESSATION THERAPY
     Dosage: UNKNOWN
     Route: 048
     Dates: start: 20090203, end: 20090220
  2. DOMPERIDONE [Suspect]
     Indication: GASTRIC DISORDER
     Dosage: FREQUENCY: AS NEEDED;
     Route: 048
     Dates: start: 20090203
  3. CLARITIN [Concomitant]
     Indication: RHINITIS ALLERGIC
     Dosage: UNK
     Route: 048
     Dates: start: 20090121
  4. PULMICORT-100 [Concomitant]
     Indication: ASTHMA
     Dates: start: 20090121, end: 20090220

REACTIONS (2)
  - ILEUS [None]
  - NAUSEA [None]
